FAERS Safety Report 8760170 (Version 3)
Quarter: 2012Q4

REPORT INFORMATION
  Report Type: 
  Country: US (occurrence: US)
  Receive Date: 20120829
  Receipt Date: 20120913
  Transmission Date: 20130627
  Serious: Yes (Hospitalization, Other)
  Sender: FDA-Public Use
  Company Number: CHPA2012US018305

PATIENT
  Sex: Female

DRUGS (2)
  1. MYOFLEX [Suspect]
     Indication: ARTHRITIS
     Dosage: Unk, 2-3 times a day, PRN
     Route: 061
  2. TYLENOL [Concomitant]

REACTIONS (16)
  - Fall [Recovered/Resolved]
  - Abasia [Recovered/Resolved]
  - Oedema peripheral [Recovered/Resolved]
  - Diabetes mellitus [Not Recovered/Not Resolved]
  - Ovarian disorder [Recovered/Resolved]
  - Arthritis [Not Recovered/Not Resolved]
  - Hypertension [Not Recovered/Not Resolved]
  - Ligament sprain [Recovered/Resolved]
  - Muscle spasms [Unknown]
  - Intervertebral disc displacement [Not Recovered/Not Resolved]
  - Foot deformity [Not Recovered/Not Resolved]
  - Migraine [Not Recovered/Not Resolved]
  - Off label use [Unknown]
  - Therapeutic response unexpected [Unknown]
  - Incorrect drug administration duration [Unknown]
  - Underdose [Unknown]
